FAERS Safety Report 17448593 (Version 1)
Quarter: 2020Q1

REPORT INFORMATION
  Report Type: Spontaneous
  Country: US (occurrence: US)
  Receive Date: 20200224
  Receipt Date: 20200224
  Transmission Date: 20200409
  Serious: No
  Sender: FDA-Public Use
  Company Number: US-ACCORD-170827

PATIENT
  Age: 47 Year
  Sex: Female

DRUGS (1)
  1. BUPROPION ACCORD [Suspect]
     Active Substance: BUPROPION HYDROCHLORIDE
     Indication: DEPRESSION
     Dosage: STRENGTH: 300 MG
     Dates: start: 2013

REACTIONS (2)
  - Product odour abnormal [Unknown]
  - Drug ineffective [Unknown]
